FAERS Safety Report 7131746-2 (Version None)
Quarter: 2010Q4

REPORT INFORMATION
  Report Type: 
  Country: None (occurrence: None)
  Receive Date: 20101202
  Receipt Date: 20100907
  Transmission Date: 20110411
  Serious: Yes (Hospitalization, Disabling)
  Sender: FDA-Public Use
  Company Number: US-BIOGENIDEC-2010BI029597

PATIENT
  Age: 49 Year
  Sex: Female
  Weight: 49 kg

DRUGS (10)
  1. TYSABRI [Suspect]
     Indication: MULTIPLE SCLEROSIS
     Route: 042
     Dates: start: 20080520, end: 20090206
  2. TYSABRI [Suspect]
     Route: 042
     Dates: start: 20100526
  3. ESTEROL [Concomitant]
     Indication: SLEEP DISORDER
     Dates: start: 20040101
  4. ROXICET [Concomitant]
     Indication: PAIN
  5. ZOLOFT [Concomitant]
     Indication: DEPRESSION
  6. FLEXERIL [Concomitant]
     Indication: FIBROMYALGIA
     Dates: start: 19900101
  7. COUMADIN [Concomitant]
     Indication: PROTEIN S DEFICIENCY
     Dates: start: 20020101
  8. VITAMIN D [Concomitant]
     Indication: SUPPLEMENTATION THERAPY
  9. CALCIUM [Concomitant]
     Indication: SUPPLEMENTATION THERAPY
  10. CHEMOTHERAPY (NOS) [Concomitant]
     Indication: MULTIPLE SCLEROSIS

REACTIONS (18)
  - ARTHRITIS [None]
  - CHRONIC OBSTRUCTIVE PULMONARY DISEASE [None]
  - CONSTIPATION [None]
  - COORDINATION ABNORMAL [None]
  - DEHYDRATION [None]
  - DYSPHAGIA [None]
  - FALL [None]
  - FOREIGN BODY [None]
  - HIP FRACTURE [None]
  - HYPOAESTHESIA [None]
  - MEMORY IMPAIRMENT [None]
  - MULTIPLE SCLEROSIS [None]
  - MULTIPLE SCLEROSIS RELAPSE [None]
  - MUSCLE SPASMS [None]
  - NAUSEA [None]
  - OEDEMA PERIPHERAL [None]
  - URINARY RETENTION [None]
  - VISUAL IMPAIRMENT [None]
